FAERS Safety Report 9289140 (Version 2)
Quarter: 2013Q2

REPORT INFORMATION
  Report Type: Report from Study
  Country: FR (occurrence: FR)
  Receive Date: 20130514
  Receipt Date: 20130606
  Transmission Date: 20140414
  Serious: Yes (Hospitalization)
  Sender: FDA-Public Use
  Company Number: FR-AMGEN-FRACT2012029453

PATIENT
  Age: 22 Year
  Sex: Male
  Weight: 58 kg

DRUGS (4)
  1. DENOSUMAB [Suspect]
     Indication: BONE GIANT CELL TUMOUR
     Dosage: 120 MG, Q4WK
     Route: 042
     Dates: start: 20111123, end: 20120416
  2. IBUPROFENE [Concomitant]
     Dosage: 400 MG, BID
     Route: 048
  3. TOLEXINE [Concomitant]
     Dosage: 100 MG, UNK
     Route: 048
     Dates: start: 20120404
  4. OXYNORM [Concomitant]
     Dosage: 10 MG, UNK
     Route: 048
     Dates: start: 20120424, end: 20120424

REACTIONS (3)
  - Arthralgia [Recovered/Resolved]
  - Pyrexia [Recovered/Resolved]
  - Pain [Not Recovered/Not Resolved]
